FAERS Safety Report 12634663 (Version 3)
Quarter: 2017Q4

REPORT INFORMATION
  Report Type: Spontaneous
  Country: CA (occurrence: CA)
  Receive Date: 20160808
  Receipt Date: 20171010
  Transmission Date: 20180320
  Serious: Yes (Life-Threatening, Hospitalization)
  Sender: FDA-Public Use
  Company Number: CA-SA-2016SA143208

PATIENT
  Age: 46 Year
  Sex: Female
  Weight: 81 kg

DRUGS (7)
  1. PYRIDOXINE [Concomitant]
     Active Substance: PYRIDOXINE
     Dosage: 5 DAYS PER WEEK
     Route: 048
  2. RIFAMPIN. [Suspect]
     Active Substance: RIFAMPIN
     Indication: PULMONARY TUBERCULOSIS
     Dosage: 5 DAYS PER WEEK
     Route: 048
     Dates: start: 20140606, end: 20140624
  3. ISONIAZID. [Concomitant]
     Active Substance: ISONIAZID
     Dosage: 5 DAYS PER WEEK
     Route: 048
  4. ETHAMBUTOL [Concomitant]
     Active Substance: ETHAMBUTOL HYDROCHLORIDE
     Dosage: 5 DAYS PER WEEK
     Route: 048
  5. MOXIFLOXACIN. [Concomitant]
     Active Substance: MOXIFLOXACIN
     Dosage: 5 DAYS PER WEEK
     Route: 048
  6. RABEPRAZOLE [Concomitant]
     Active Substance: RABEPRAZOLE
     Route: 048
  7. PYRAZINAMIDE. [Concomitant]
     Active Substance: PYRAZINAMIDE
     Dosage: 5 DAYS PER WEEK
     Route: 048

REACTIONS (4)
  - Petechiae [Recovered/Resolved]
  - Lethargy [Recovered/Resolved]
  - Platelet count decreased [Recovered/Resolved]
  - Rash [Recovered/Resolved]

NARRATIVE: CASE EVENT DATE: 20140624
